FAERS Safety Report 9832628 (Version 2)
Quarter: 2014Q1

REPORT INFORMATION
  Report Type: Spontaneous
  Country: US (occurrence: US)
  Receive Date: 20140121
  Receipt Date: 20140205
  Transmission Date: 20141002
  Serious: Yes (Disabling)
  Sender: FDA-Public Use
  Company Number: US-009507513-1401USA006895

PATIENT
  Age: 66 Year
  Sex: Female

DRUGS (2)
  1. COZAAR [Suspect]
     Indication: HYPERTENSION
     Dosage: 100 MG, QD
     Route: 048
     Dates: start: 2011
  2. LOSARTAN POTASSIUM TABLETS [Concomitant]
     Indication: HYPERTENSION
     Dosage: 100 MG, QD
     Route: 048

REACTIONS (4)
  - Upper limb fracture [Unknown]
  - Fall [Unknown]
  - Renal mass [Unknown]
  - Joint swelling [Unknown]
